FAERS Safety Report 15945879 (Version 2)
Quarter: 2019Q1

REPORT INFORMATION
  Report Type: Spontaneous
  Country: CH (occurrence: CH)
  Receive Date: 20190211
  Receipt Date: 20190315
  Transmission Date: 20190417
  Serious: Yes (Life-Threatening)
  Sender: FDA-Public Use
  Company Number: CH-ROCHE-2258767

PATIENT
  Age: 40 Year
  Sex: Female

DRUGS (4)
  1. OCREVUS [Suspect]
     Active Substance: OCRELIZUMAB
     Indication: MULTIPLE SCLEROSIS
     Route: 042
     Dates: start: 20180328, end: 20180411
  2. DAFALGAN [Concomitant]
     Active Substance: ACETAMINOPHEN
     Route: 048
  3. INSULINE [Concomitant]
     Active Substance: INSULIN NOS
     Route: 058
  4. TAVEGYL [Concomitant]
     Active Substance: CLEMASTINE FUMARATE
     Route: 065

REACTIONS (1)
  - Breast cancer [Unknown]

NARRATIVE: CASE EVENT DATE: 201808
